FAERS Safety Report 12805481 (Version 2)
Quarter: 2016Q4

REPORT INFORMATION
  Report Type: Spontaneous
  Country: US (occurrence: US)
  Receive Date: 20161004
  Receipt Date: 20161103
  Transmission Date: 20170207
  Serious: Yes (Hospitalization, Other)
  Sender: FDA-Public Use
  Company Number: US-009507513-1609USA012636

PATIENT
  Age: 47 Year
  Sex: Female
  Weight: 85.71 kg

DRUGS (1)
  1. NUVARING [Suspect]
     Active Substance: ETHINYL ESTRADIOL\ETONOGESTREL
     Indication: CONTRACEPTION
     Dosage: STRENGTH REPORTED AS 0.015/0.12 (UNITS NOT PROVIDED), 1 DF, UNK
     Route: 067
     Dates: end: 20160920

REACTIONS (2)
  - Shock [Unknown]
  - Pulmonary embolism [Unknown]

NARRATIVE: CASE EVENT DATE: 20160920
